FAERS Safety Report 13796085 (Version 1)
Quarter: 2017Q3

REPORT INFORMATION
  Report Type: Not Available
  Country: GB (occurrence: GB)
  Receive Date: 20170726
  Receipt Date: 20170726
  Transmission Date: 20171127
  Serious: Yes (Other)
  Sender: FDA-Public Use
  Company Number: GB-SYNTHON BV-NL01PV17_44278

PATIENT
  Age: 80 Year
  Sex: Male

DRUGS (1)
  1. TAMSULOSIN [Suspect]
     Active Substance: TAMSULOSIN
     Dosage: 400 ?G, UNK
     Route: 065

REACTIONS (3)
  - Product formulation issue [Unknown]
  - Fall [Unknown]
  - Gout [Unknown]
